FAERS Safety Report 7022286-X (Version None)
Quarter: 2010Q3

REPORT INFORMATION
  Report Type: 
  Country: None (occurrence: None)
  Receive Date: 20100930
  Receipt Date: 20100921
  Transmission Date: 20110219
  Serious: Yes (Death, Other)
  Sender: FDA-Public Use
  Company Number: CO-WYE-H17687410

PATIENT
  Sex: Male

DRUGS (1)
  1. RAPAMUNE [Suspect]
     Indication: INTESTINAL TRANSPLANT
     Dosage: UNSPECIFIED

REACTIONS (5)
  - CONDITION AGGRAVATED [None]
  - GENERAL PHYSICAL HEALTH DETERIORATION [None]
  - IMMUNOSUPPRESSION [None]
  - RENAL FAILURE [None]
  - TUBERCULOSIS [None]
